FAERS Safety Report 8002108-0 (Version None)
Quarter: 2011Q4

REPORT INFORMATION
  Report Type: 
  Country: None (occurrence: None)
  Receive Date: 20111222
  Receipt Date: 20111215
  Transmission Date: 20120403
  Serious: Yes (Hospitalization, Other)
  Sender: FDA-Public Use
  Company Number: DE-PFIZER INC-2011243417

PATIENT
  Age: 73 Year
  Sex: Female
  Weight: 49 kg

DRUGS (4)
  1. SUTENT [Suspect]
     Dosage: 50 MG, 1X/DAY
     Route: 048
     Dates: start: 20111213
  2. EVEROLIMUS [Suspect]
     Indication: METASTATIC RENAL CELL CARCINOMA
  3. NEXAVAR [Suspect]
     Indication: METASTATIC RENAL CELL CARCINOMA
  4. SUTENT [Suspect]
     Indication: METASTATIC RENAL CELL CARCINOMA
     Dosage: 50 MG, 1X/DAY
     Route: 048
     Dates: start: 20091104, end: 20091113

REACTIONS (7)
  - DIARRHOEA [None]
  - HAEMATOCHEZIA [None]
  - METASTATIC RENAL CELL CARCINOMA [None]
  - LIVER INJURY [None]
  - ILEUS [None]
  - SHORT-BOWEL SYNDROME [None]
  - DISEASE PROGRESSION [None]
